FAERS Safety Report 9893914 (Version 2)
Quarter: 2014Q1

REPORT INFORMATION
  Report Type: Spontaneous
  Country: US (occurrence: US)
  Receive Date: 20140213
  Receipt Date: 20140312
  Transmission Date: 20141002
  Serious: No
  Sender: FDA-Public Use
  Company Number: US-009507513-1402USA005609

PATIENT
  Sex: Male

DRUGS (2)
  1. DULERA [Suspect]
     Dosage: 2 DF, QAM
     Route: 055
  2. DULERA [Suspect]
     Dosage: 2 DF, QPM
     Route: 055

REACTIONS (4)
  - Overdose [Unknown]
  - Drug dose omission [Unknown]
  - Product quality issue [Unknown]
  - No adverse event [Unknown]
